FAERS Safety Report 17203483 (Version 2)
Quarter: 2020Q1

REPORT INFORMATION
  Report Type: Spontaneous
  Country: JP (occurrence: JP)
  Receive Date: 20191226
  Receipt Date: 20200129
  Transmission Date: 20200409
  Serious: Yes (Hospitalization)
  Sender: FDA-Public Use
  Company Number: JP-JNJFOC-20191235410

PATIENT
  Age: 66 Year
  Sex: Female
  Weight: 53 kg

DRUGS (2)
  1. SIMPONI [Suspect]
     Active Substance: GOLIMUMAB
     Indication: RHEUMATOID ARTHRITIS
     Dosage: RIGHT UPPER ARM
     Route: 058
     Dates: start: 20191217
  2. SIMPONI [Suspect]
     Active Substance: GOLIMUMAB
     Dosage: RIGHT UPPER ARM
     Route: 058
     Dates: start: 20191217

REACTIONS (2)
  - Fall [Unknown]
  - Lower limb fracture [Recovered/Resolved]
